FAERS Safety Report 10286326 (Version 1)
Quarter: 2014Q3

REPORT INFORMATION
  Report Type: Spontaneous
  Country: US (occurrence: US)
  Receive Date: 20140709
  Receipt Date: 20140709
  Transmission Date: 20150326
  Serious: Yes (Hospitalization, Other)
  Sender: FDA-Public Use
  Company Number: US-RB-067156-14

PATIENT
  Age: 66 Year
  Sex: Female

DRUGS (6)
  1. DELSYM [Suspect]
     Active Substance: DEXTROMETHORPHAN
     Indication: WHEEZING
     Dosage: TOOK LAST ON 26-JUN-2014.
     Route: 048
     Dates: start: 20140626
  2. BABY ASPIRIN [Concomitant]
     Active Substance: ASPIRIN
     Indication: PRODUCT USED FOR UNKNOWN INDICATION
  3. METOPROLOL [Concomitant]
     Active Substance: METOPROLOL
     Indication: PRODUCT USED FOR UNKNOWN INDICATION
     Dosage: TOOK 25 MG ONCE DAILY.
  4. CLONIDINE. [Concomitant]
     Active Substance: CLONIDINE
     Indication: PRODUCT USED FOR UNKNOWN INDICATION
  5. DELSYM [Suspect]
     Active Substance: DEXTROMETHORPHAN
     Indication: WHEEZING
     Dosage: TOOK LAST ON 26-JUN-2014.
     Route: 048
     Dates: start: 20140626
  6. DIOVAN [Concomitant]
     Active Substance: VALSARTAN
     Indication: PRODUCT USED FOR UNKNOWN INDICATION
     Dosage: TOOK 80 MG TWICE DAILY.

REACTIONS (4)
  - Blood pressure increased [Recovered/Resolved]
  - Retching [Recovered/Resolved]
  - Nausea [Recovered/Resolved]
  - Headache [Recovered/Resolved]

NARRATIVE: CASE EVENT DATE: 20140626
